FAERS Safety Report 7312557-1 (Version None)
Quarter: 2011Q1

REPORT INFORMATION
  Report Type: 
  Country: None (occurrence: None)
  Receive Date: 20110224
  Receipt Date: 20110221
  Transmission Date: 20110831
  Serious: Yes (Life-Threatening)
  Sender: FDA-Public Use
  Company Number: PHHY2011PL11059

PATIENT
  Sex: Female
  Weight: 68 kg

DRUGS (4)
  1. KETONAL DUO [Suspect]
     Indication: BACK PAIN
     Dosage: 150 MG
     Route: 048
     Dates: start: 20110204, end: 20110209
  2. TETRARATIO [Concomitant]
     Indication: BACK PAIN
     Dosage: UNK
     Dates: start: 20110204, end: 20110209
  3. LORATADYNA [Concomitant]
     Indication: ANAPHYLACTOID REACTION
     Dosage: UNK
     Dates: start: 20110209
  4. TETRARATIO [Concomitant]
     Indication: SCIATICA

REACTIONS (7)
  - PRURITUS [None]
  - DYSPNOEA [None]
  - APHONIA [None]
  - HYPOAESTHESIA ORAL [None]
  - ANAPHYLACTOID REACTION [None]
  - CHEST PAIN [None]
  - ANXIETY [None]
